FAERS Safety Report 23157816 (Version 2)
Quarter: 2023Q4

REPORT INFORMATION
  Report Type: Report from Study
  Country: US (occurrence: US)
  Receive Date: 20231108
  Receipt Date: 20231120
  Transmission Date: 20240110
  Serious: Yes (Hospitalization, Other)
  Sender: FDA-Public Use
  Company Number: US-BIOVITRUM-2023-US-015685

PATIENT
  Age: 5 Month
  Sex: Female
  Weight: 4.15 kg

DRUGS (4)
  1. SYNAGIS [Suspect]
     Active Substance: PALIVIZUMAB
     Indication: Premature baby
     Dosage: 15MG/KG EVERY 28 DAYS?100MG/1ML?50MG/0.5ML
     Route: 030
  2. LANSOPRAZOLE [Concomitant]
     Active Substance: LANSOPRAZOLE
     Indication: Product used for unknown indication
  3. POLY-VI-SOL/IRON [Concomitant]
     Indication: Product used for unknown indication
  4. D3 BABY DROPS [Concomitant]
     Indication: Product used for unknown indication

REACTIONS (6)
  - Pneumonia [Unknown]
  - Viral infection [Unknown]
  - Bronchiolitis [Unknown]
  - Respiratory syncytial virus infection [Unknown]
  - Rhinovirus infection [Unknown]
  - Drug ineffective [Unknown]
